FAERS Safety Report 25479337 (Version 1)
Quarter: 2025Q2

REPORT INFORMATION
  Report Type: Spontaneous
  Country: US (occurrence: None)
  Receive Date: 20250625
  Receipt Date: 20250625
  Transmission Date: 20250716
  Serious: Yes (Hospitalization)
  Sender: FDA-CTU
  Company Number: None

PATIENT
  Age: 53 Year
  Sex: Female

DRUGS (2)
  1. OLANZAPINE\SAMIDORPHAN [Suspect]
     Active Substance: OLANZAPINE\SAMIDORPHAN
     Dosage: FREQUENCY : DAILY;?
     Route: 048
  2. BUPRENORPHINE [Concomitant]
     Active Substance: BUPRENORPHINE

REACTIONS (16)
  - Product substitution issue [None]
  - Product prescribing issue [None]
  - Hallucination [None]
  - Dyskinesia [None]
  - Dyskinesia [None]
  - Mental status changes [None]
  - Hypertension [None]
  - Emotional distress [None]
  - Anxiety [None]
  - Irritability [None]
  - Paranoia [None]
  - Drug withdrawal syndrome [None]
  - Toxicity to various agents [None]
  - Drug withdrawal syndrome [None]
  - Abnormal behaviour [None]
  - Drug interaction [None]

NARRATIVE: CASE EVENT DATE: 20250513
